FAERS Safety Report 19711198 (Version 4)
Quarter: 2024Q4

REPORT INFORMATION
  Report Type: Spontaneous
  Country: JP (occurrence: JP)
  Receive Date: 20210816
  Receipt Date: 20241230
  Transmission Date: 20250114
  Serious: Yes (Death, Hospitalization, Disabling, Other)
  Sender: JAZZ
  Company Number: JP-JAZZ-2021-JP-014661

PATIENT
  Age: 16 Year
  Sex: Male
  Weight: 52.8 kg

DRUGS (3)
  1. DEFITELIO [Suspect]
     Active Substance: DEFIBROTIDE SODIUM
     Indication: Venoocclusive liver disease
     Dosage: 25 MILLIGRAM/KILOGRAM, QD
     Route: 042
     Dates: start: 20210301, end: 20210401
  2. DEFITELIO [Suspect]
     Active Substance: DEFIBROTIDE SODIUM
     Dosage: UNKNOWN DOSE AND DURATION
     Route: 042
     Dates: start: 20210725, end: 202108
  3. DEXMEDETOMIDINE HYDROCHLORIDE [Suspect]
     Active Substance: DEXMEDETOMIDINE HYDROCHLORIDE
     Indication: Product used for unknown indication
     Route: 042

REACTIONS (14)
  - Death [Fatal]
  - Hypotension [Recovered/Resolved]
  - Gastric haemorrhage [Recovered/Resolved]
  - Tracheal haemorrhage [Recovered/Resolved]
  - Haemorrhagic diathesis [Not Recovered/Not Resolved]
  - Infection [Not Recovered/Not Resolved]
  - Hypotension [Recovering/Resolving]
  - Haematuria [Recovered/Resolved]
  - Hypoalbuminaemia [Unknown]
  - Fungal infection [Recovering/Resolving]
  - Gastric mucosal lesion [Unknown]
  - Bladder injury [Unknown]
  - Bladder catheterisation [Unknown]
  - Mouth haemorrhage [Recovering/Resolving]

NARRATIVE: CASE EVENT DATE: 20210301
